FAERS Safety Report 7902882-5 (Version None)
Quarter: 2011Q4

REPORT INFORMATION
  Report Type: 
  Country: None (occurrence: None)
  Receive Date: 20111107
  Receipt Date: 20111024
  Transmission Date: 20120403
  Serious: Yes (Other)
  Sender: FDA-Public Use
  Company Number: CIP11002609

PATIENT
  Age: 57 Year
  Sex: Female

DRUGS (1)
  1. ACTONEL [Suspect]
     Dosage: 35 MG, ORAL
     Route: 048
     Dates: start: 20040802, end: 20110921

REACTIONS (2)
  - GASTROOESOPHAGEAL REFLUX DISEASE [None]
  - BARRETT'S OESOPHAGUS [None]
